FAERS Safety Report 18565318 (Version 1)
Quarter: 2020Q4

REPORT INFORMATION
  Report Type: Spontaneous
  Country: US (occurrence: US)
  Receive Date: 20201201
  Receipt Date: 20201201
  Transmission Date: 20210114
  Serious: No
  Sender: FDA-Public Use
  Company Number: US-BEH-2020125373

PATIENT
  Age: 45 Year
  Sex: Female

DRUGS (1)
  1. PRIVIGEN [Suspect]
     Active Substance: HUMAN IMMUNOGLOBULIN G
     Indication: AUTOIMMUNE DISORDER
     Dosage: UNK
     Route: 042
     Dates: start: 20200914

REACTIONS (5)
  - Pyrexia [Unknown]
  - Lymphadenopathy [Unknown]
  - Off label use [Unknown]
  - Hypoaesthesia [Unknown]
  - No adverse event [Unknown]

NARRATIVE: CASE EVENT DATE: 202010
